FAERS Safety Report 11634785 (Version 1)
Quarter: 2015Q4

REPORT INFORMATION
  Report Type: Spontaneous
  Country: US (occurrence: US)
  Receive Date: 20151015
  Receipt Date: 20151015
  Transmission Date: 20160304
  Serious: No
  Sender: FDA-Public Use
  Company Number: US-INDIVIOR-RB-075598-2015

PATIENT
  Age: 31 Year
  Sex: Female

DRUGS (2)
  1. BUPRENORPHINE GENERIC TAB [Suspect]
     Active Substance: BUPRENORPHINE
     Indication: DRUG DEPENDENCE
     Dosage: TRIES TO TAKE 4 MG DAILY
     Route: 060
     Dates: start: 201412
  2. SUBOXONE [Suspect]
     Active Substance: BUPRENORPHINE HYDROCHLORIDE\NALOXONE HYDROCHLORIDE
     Indication: DRUG DEPENDENCE
     Dosage: TRIES TO TAKE 4 MG DAILY
     Route: 060
     Dates: start: 201412

REACTIONS (8)
  - Product preparation error [Not Recovered/Not Resolved]
  - Restless legs syndrome [Recovered/Resolved]
  - Substance abuse [Not Recovered/Not Resolved]
  - Hyperhidrosis [Recovered/Resolved]
  - Chills [Recovered/Resolved]
  - Retching [Recovered/Resolved]
  - Drug withdrawal syndrome [Not Recovered/Not Resolved]
  - Insomnia [Recovered/Resolved]

NARRATIVE: CASE EVENT DATE: 201412
